FAERS Safety Report 18340131 (Version 1)
Quarter: 2020Q4

REPORT INFORMATION
  Report Type: Spontaneous
  Country: CA (occurrence: CA)
  Receive Date: 20201002
  Receipt Date: 20201002
  Transmission Date: 20210113
  Serious: Yes (Hospitalization, Other)
  Sender: FDA-Public Use
  Company Number: CA-JNJFOC-20200948226

PATIENT
  Age: 55 Year
  Sex: Female

DRUGS (6)
  1. MESALAZINE [Concomitant]
     Active Substance: MESALAMINE
     Route: 065
  2. MEZAVANT [Concomitant]
     Active Substance: MESALAMINE
     Route: 065
  3. INFLIXIMAB, RECOMBINANT [Suspect]
     Active Substance: INFLIXIMAB
     Indication: COLITIS ULCERATIVE
     Route: 042
  4. SOLU-MEDROL [Concomitant]
     Active Substance: METHYLPREDNISOLONE SODIUM SUCCINATE
     Route: 042
  5. HYDROCORTISONE. [Concomitant]
     Active Substance: HYDROCORTISONE
     Route: 065
  6. RIFAMPIN. [Concomitant]
     Active Substance: RIFAMPIN
     Route: 048

REACTIONS (12)
  - Immobile [Recovered/Resolved]
  - Rhinorrhoea [Recovered/Resolved]
  - Incorrect dose administered [Unknown]
  - Dizziness [Recovered/Resolved]
  - Crohn^s disease [Recovered/Resolved]
  - Oropharyngeal pain [Recovered/Resolved]
  - Inappropriate schedule of product administration [Unknown]
  - Cough [Recovered/Resolved]
  - Condition aggravated [Recovered/Resolved]
  - Accident [Recovered/Resolved]
  - Off label use [Unknown]
  - Colitis ulcerative [Recovered/Resolved]
